FAERS Safety Report 23682983 (Version 1)
Quarter: 2024Q1

REPORT INFORMATION
  Report Type: Spontaneous
  Country: US (occurrence: None)
  Receive Date: 20240327
  Receipt Date: 20240327
  Transmission Date: 20240410
  Serious: Yes (Hospitalization)
  Sender: FDA-Public Use
  Company Number: None

PATIENT
  Sex: Male

DRUGS (2)
  1. PREVYMIS [Suspect]
     Active Substance: LETERMOVIR
     Indication: Stem cell transplant
     Dosage: FREQUENCY : DAILY;?
     Route: 048
     Dates: start: 202402
  2. SORAFENIB [Concomitant]
     Active Substance: SORAFENIB

REACTIONS (5)
  - Nausea [None]
  - Irritability [None]
  - Mydriasis [None]
  - Rash [None]
  - Blood pressure increased [None]
